FAERS Safety Report 11943185 (Version 1)
Quarter: 2016Q1

REPORT INFORMATION
  Report Type: Spontaneous
  Country: US (occurrence: US)
  Receive Date: 20160125
  Receipt Date: 20160125
  Transmission Date: 20160526
  Serious: No
  Sender: FDA-Public Use
  Company Number: US-UNITED THERAPEUTICS-UNT-2015-009647

PATIENT
  Age: 85 Year
  Sex: Female
  Weight: 63.49 kg

DRUGS (10)
  1. ORENITRAM [Suspect]
     Active Substance: TREPROSTINIL
     Dosage: 2.5 MG, UNK
     Route: 048
  2. ORENITRAM [Suspect]
     Active Substance: TREPROSTINIL
     Dosage: 1.75 MG, BID
     Route: 048
  3. ADEMPAS [Concomitant]
     Active Substance: RIOCIGUAT
     Indication: PRODUCT USED FOR UNKNOWN INDICATION
  4. ORENITRAM [Suspect]
     Active Substance: TREPROSTINIL
     Dosage: 1.25 MG, BID
     Route: 048
  5. ORENITRAM [Suspect]
     Active Substance: TREPROSTINIL
     Dosage: 3 MG, BID
     Route: 048
  6. REMODULIN [Suspect]
     Active Substance: TREPROSTINIL
     Indication: PULMONARY HYPERTENSION
     Dosage: 0.022 ?G/KG/MIN, CONTINUING
     Route: 058
     Dates: start: 20101004
  7. REMODULIN [Suspect]
     Active Substance: TREPROSTINIL
     Dosage: 0.074 ?G/KG/MIN, CONTINUING
     Route: 058
  8. REMODULIN [Suspect]
     Active Substance: TREPROSTINIL
     Dosage: 0.054 ?G/KG/MIN, CONTINUING
     Route: 058
  9. COUMADIN [Concomitant]
     Active Substance: WARFARIN SODIUM
     Indication: PRODUCT USED FOR UNKNOWN INDICATION
  10. ORENITRAM [Suspect]
     Active Substance: TREPROSTINIL
     Indication: PULMONARY HYPERTENSION
     Dosage: 0.25 MG, BID
     Route: 048
     Dates: start: 20150805

REACTIONS (9)
  - Feeling abnormal [Unknown]
  - Drug dose omission [Unknown]
  - Abdominal discomfort [Unknown]
  - Fatigue [Unknown]
  - Nausea [Recovering/Resolving]
  - Dyspnoea [Unknown]
  - Disorientation [Recovering/Resolving]
  - Infusion site pain [Unknown]
  - Device issue [Recovered/Resolved]

NARRATIVE: CASE EVENT DATE: 2015
